FAERS Safety Report 12850605 (Version 1)
Quarter: 2016Q4

REPORT INFORMATION
  Report Type: Report from Study
  Country: None (occurrence: CA)
  Receive Date: 20161014
  Receipt Date: 20161014
  Transmission Date: 20170207
  Serious: Yes (Hospitalization, Other)
  Sender: FDA-Public Use
  Company Number: CA-ABBVIE-16P-028-1749000-00

PATIENT
  Age: 62 Year
  Sex: Female

DRUGS (1)
  1. HUMIRA [Suspect]
     Active Substance: ADALIMUMAB
     Indication: CROHN^S DISEASE
     Route: 058
     Dates: start: 20140824

REACTIONS (6)
  - Gallbladder disorder [Recovered/Resolved]
  - Vomiting [Recovered/Resolved]
  - Gallbladder disorder [Recovered/Resolved]
  - Crohn^s disease [Recovered/Resolved]
  - Cholelithiasis [Recovered/Resolved]
  - Diarrhoea [Recovered/Resolved]

NARRATIVE: CASE EVENT DATE: 2015
